FAERS Safety Report 4618035-2 (Version None)
Quarter: 2005Q1

REPORT INFORMATION
  Report Type: 
  Country: None (occurrence: None)
  Receive Date: 20050324
  Receipt Date: 20050309
  Transmission Date: 20050727
  Serious: Yes (Death)
  Sender: FDA-Public Use
  Company Number: PHBS2005BR03481

PATIENT
  Age: 54 Year
  Sex: Female

DRUGS (7)
  1. ZELMAC [Suspect]
     Indication: IRRITABLE BOWEL SYNDROME
     Dosage: 2 DF, QD
     Route: 048
     Dates: start: 20040801
  2. ZELMAC [Suspect]
     Route: 048
     Dates: start: 20041111
  3. PAROXETINE HCL [Concomitant]
     Indication: DEPRESSION
  4. FLUOXETINE [Concomitant]
  5. EFFEXOR [Concomitant]
  6. OLCADIL [Concomitant]
  7. LESCOL [Concomitant]

REACTIONS (7)
  - CARDIAC MASSAGE [None]
  - CARDIO-RESPIRATORY ARREST [None]
  - CARDIOVERSION [None]
  - COMPLETED SUICIDE [None]
  - INTENTIONAL MISUSE [None]
  - INTUBATION [None]
  - OXYGEN SUPPLEMENTATION [None]
